FAERS Safety Report 4888549-9 (Version None)
Quarter: 2005Q4

REPORT INFORMATION
  Report Type: 
  Country: None (occurrence: None)
  Receive Date: 20051215
  Receipt Date: 20050615
  Transmission Date: 20060501
  Serious: Yes (Other)
  Sender: FDA-Public Use
  Company Number: 2005064460

PATIENT
  Age: 59 Year
  Sex: Female

DRUGS (8)
  1. BEXTRA [Suspect]
     Indication: FIBROMYALGIA
     Dosage: 10-20 MG (1 IN 1 D), ORAL
     Route: 048
     Dates: start: 20030214, end: 20040909
  2. BEXTRA [Suspect]
     Indication: OSTEOARTHRITIS
     Dosage: 10-20 MG (1 IN 1 D), ORAL
     Route: 048
     Dates: start: 20030214, end: 20040909
  3. LEVOXYL [Concomitant]
  4. LOVASTATIN [Concomitant]
  5. CYCLOBENZAPRINE HCL [Concomitant]
  6. FLUOXETINE [Concomitant]
  7. LISINOPRIL W/HYDROCHLORTHIAZIDE (HYDROCHLOROTHIAZIDE, LISINOPRIL) [Concomitant]
  8. IBUPROFEN [Concomitant]

REACTIONS (4)
  - ACCIDENT [None]
  - BLOOD PRESSURE INCREASED [None]
  - PAIN [None]
  - RASH ERYTHEMATOUS [None]
